FAERS Safety Report 9702084 (Version 2)
Quarter: 2013Q4

REPORT INFORMATION
  Report Type: Spontaneous
  Country: DE (occurrence: DE)
  Receive Date: 20131121
  Receipt Date: 20131220
  Transmission Date: 20140711
  Serious: Yes (Life-Threatening, Hospitalization, Congenital Anomaly, Other)
  Sender: FDA-Public Use
  Company Number: DE-PFIZER INC-2013327473

PATIENT
  Age: 1 Day
  Sex: Male
  Weight: 2.8 kg

DRUGS (7)
  1. EPIRUBICIN HCL [Suspect]
     Indication: BREAST CANCER
     Dosage: 156 MG, TWICE DURING PREGNANCY ON 14SEP2012 AND ON 05OCT2012, 30.6.-33.6. GESTATIONAL WEEK
     Route: 064
     Dates: start: 20120914, end: 20121005
  2. LAMOTRIGINE [Suspect]
     Indication: EPILEPSY
     Dosage: BEGIN OF PREGNANCY: 2X50 MG; IN THE END: 2X150 MG, 0.-37.2. GESTATIONAL WEEK
     Route: 064
     Dates: start: 20120211, end: 20121029
  3. CYCLOPHOSPHAMIDE [Suspect]
     Indication: BREAST CANCER
     Dosage: 1040 MG, TWICE DURING PREGNANCY ON 14SEP2012 AND ON 05OCT2012, 30.6.-33.6. GESTATIONAL WEEK
     Route: 064
     Dates: start: 20120914, end: 20121005
  4. FOLSAURE [Concomitant]
     Indication: PROPHYLAXIS OF NEURAL TUBE DEFECT
     Dosage: 5 MG, DAILY, 0.-37.2. GESTATIONAL WEEK
     Route: 064
     Dates: start: 20120211, end: 20121029
  5. FILGRASTIM [Concomitant]
     Indication: CHEMOTHERAPY
     Dosage: TWICE DURING PREGNANCY ON 14SEP2012 AND ON 05OCT2012, 30.6.-33.6. GESTATIONAL WEEK
     Route: 064
     Dates: start: 20120914, end: 20121005
  6. DEXAMETHASONE [Concomitant]
     Indication: PROPHYLAXIS OF NAUSEA AND VOMITING
     Dosage: TWICE DURING PREGNANCY ON 14SEP2012 AND ON 05OCT2012, 30.6.-33.6. GESTATIONAL WEEK
     Route: 064
     Dates: start: 20120914, end: 20121005
  7. ONDANSETRON [Concomitant]
     Indication: PROPHYLAXIS OF NAUSEA AND VOMITING
     Dosage: TWICE DURING PREGNANCY ON 14SEP2012 AND ON 05OCT2012, 30.6.-33.6. GESTATIONAL WEEK
     Route: 064
     Dates: start: 20120914, end: 20121005

REACTIONS (6)
  - Hypospadias [Not Recovered/Not Resolved]
  - Pulmonary artery stenosis congenital [Unknown]
  - Atrial septal defect [Not Recovered/Not Resolved]
  - Neonatal respiratory distress syndrome [Recovered/Resolved]
  - Maternal exposure during pregnancy [Recovered/Resolved]
  - Premature baby [Unknown]
